FAERS Safety Report 10178669 (Version 1)
Quarter: 2014Q2

REPORT INFORMATION
  Report Type: Spontaneous
  Country: US (occurrence: US)
  Receive Date: 20140519
  Receipt Date: 20140519
  Transmission Date: 20141212
  Serious: No
  Sender: FDA-Public Use
  Company Number: US-TEVA-480609USA

PATIENT
  Age: 29 Year
  Sex: Female

DRUGS (1)
  1. NUVIGIL [Suspect]
     Indication: HYPERSOMNIA
     Dosage: START WITH 75MG THEN TAPER TO 150MG
     Route: 048
     Dates: start: 20140423, end: 20140502

REACTIONS (4)
  - Stomatitis [Recovered/Resolved]
  - Tongue discolouration [Recovered/Resolved]
  - Tongue disorder [Recovered/Resolved]
  - Thirst [Recovered/Resolved]
